APPROVED DRUG PRODUCT: TERCONAZOLE
Active Ingredient: TERCONAZOLE
Strength: 0.4%
Dosage Form/Route: CREAM;VAGINAL
Application: A076043 | Product #001 | TE Code: AB
Applicant: SUN PHARMA CANADA INC
Approved: Jan 19, 2005 | RLD: No | RS: Yes | Type: RX